FAERS Safety Report 13418286 (Version 1)
Quarter: 2017Q2

REPORT INFORMATION
  Report Type: Report from Study
  Country: US (occurrence: US)
  Receive Date: 20170407
  Receipt Date: 20170407
  Transmission Date: 20170830
  Serious: Yes (Other)
  Sender: FDA-Public Use
  Company Number: US-BRISTOL-MYERS SQUIBB COMPANY-BMS-2017-029620

PATIENT
  Age: 18 Year
  Sex: Female

DRUGS (5)
  1. ALBUTEROL                          /00139501/ [Suspect]
     Active Substance: ALBUTEROL
     Indication: ASTHMA
     Dosage: UNK, PRN
     Route: 065
  2. ARIPIPRAZOLE. [Suspect]
     Active Substance: ARIPIPRAZOLE
     Indication: DEPRESSION
     Route: 065
  3. ARIPIPRAZOLE. [Suspect]
     Active Substance: ARIPIPRAZOLE
     Indication: BIPOLAR DISORDER
     Dosage: 30 MG, UNK
     Route: 065
  4. ZYRTEC [Suspect]
     Active Substance: CETIRIZINE HYDROCHLORIDE
     Indication: HYPERSENSITIVITY
     Route: 065
  5. NORTRIPTYLINE [Suspect]
     Active Substance: NORTRIPTYLINE
     Indication: BIPOLAR DISORDER
     Route: 065

REACTIONS (4)
  - Premature delivery [Unknown]
  - Premature rupture of membranes [Unknown]
  - Maternal exposure during pregnancy [Recovered/Resolved]
  - Product use issue [Unknown]

NARRATIVE: CASE EVENT DATE: 20120927
